FAERS Safety Report 6357599-8 (Version None)
Quarter: 2009Q3

REPORT INFORMATION
  Report Type: 
  Country: None (occurrence: None)
  Receive Date: 20090916
  Receipt Date: 20090909
  Transmission Date: 20100115
  Serious: Yes (Other)
  Sender: FDA-Public Use
  Company Number: PHHY2009KR38845

PATIENT
  Sex: Female

DRUGS (1)
  1. GLEEVEC [Suspect]
     Indication: CHRONIC MYELOID LEUKAEMIA
     Dosage: UNK
     Route: 048

REACTIONS (6)
  - EYELID OEDEMA [None]
  - MEMORY IMPAIRMENT [None]
  - SENSE OF OPPRESSION [None]
  - SKIN OEDEMA [None]
  - STUPOR [None]
  - VOMITING [None]
